FAERS Safety Report 6686726-8 (Version None)
Quarter: 2010Q2

REPORT INFORMATION
  Report Type: 
  Country: None (occurrence: None)
  Receive Date: 20100419
  Receipt Date: 20100409
  Transmission Date: 20101027
  Serious: Yes (Hospitalization, Congenital Anomaly)
  Sender: FDA-Public Use
  Company Number: IT-NOVEN-10IT001298

PATIENT
  Sex: Female
  Weight: 1.25 kg

DRUGS (3)
  1. PAROXETINE HCL [Suspect]
     Indication: DRUG EXPOSURE DURING PREGNANCY
     Dosage: 5 MG, QD, SEE TEXT
  2. PAROXETINE HCL [Suspect]
     Dosage: 20 MG, QD
     Route: 015
  3. UNKNOWN [Concomitant]

REACTIONS (19)
  - AGITATION NEONATAL [None]
  - ATRIAL SEPTAL DEFECT [None]
  - CEREBRAL DISORDER [None]
  - DEVELOPMENTAL DELAY [None]
  - DRUG EXPOSURE DURING PREGNANCY [None]
  - DYSMORPHISM [None]
  - DYSPNOEA [None]
  - HYPOTONIA NEONATAL [None]
  - IRRITABILITY [None]
  - JOINT HYPEREXTENSION [None]
  - NASAL CONGESTION [None]
  - NEONATAL RESPIRATORY DEPRESSION [None]
  - PREMATURE BABY [None]
  - PSYCHOMOTOR HYPERACTIVITY [None]
  - PULMONARY VALVE STENOSIS [None]
  - SINGLE UMBILICAL ARTERY [None]
  - SMALL FOR DATES BABY [None]
  - TACHYPNOEA [None]
  - USE OF ACCESSORY RESPIRATORY MUSCLES [None]
